FAERS Safety Report 7221338-9 (Version None)
Quarter: 2011Q1

REPORT INFORMATION
  Report Type: 
  Country: None (occurrence: None)
  Receive Date: 20110112
  Receipt Date: 20110111
  Transmission Date: 20110831
  Serious: Yes (Death, Hospitalization)
  Sender: FDA-Public Use
  Company Number: JP-BAYER-2011-003343

PATIENT
  Sex: Male
  Weight: 52 kg

DRUGS (1)
  1. NEXAVAR 200MG SPECIFIC DRUG USE INVESTIGATION (HCC) [Suspect]
     Indication: HEPATIC NEOPLASM MALIGNANT
     Dosage: UNK
     Route: 048
     Dates: start: 20090630, end: 20090807

REACTIONS (5)
  - DIARRHOEA [None]
  - PYREXIA [None]
  - MALAISE [None]
  - ALTERED STATE OF CONSCIOUSNESS [None]
  - HEPATIC NEOPLASM MALIGNANT [None]
